FAERS Safety Report 5173610-4 (Version None)
Quarter: 2006Q4

REPORT INFORMATION
  Report Type: 
  Country: None (occurrence: None)
  Receive Date: 20061208
  Receipt Date: 20061208
  Transmission Date: 20070319
  Serious: Yes (Hospitalization)
  Sender: FDA-Public Use
  Company Number: None

PATIENT
  Sex: Male
  Weight: 17.1 kg

DRUGS (6)
  1. CYCLOPHOSPHAMIDE [Suspect]
     Dosage: 1470 MG
  2. CYTARABINE [Suspect]
     Dosage: 880 MG
  3. MERCAPTOPURINE [Suspect]
     Dosage: 1300 MG
  4. METHOTREXATE [Suspect]
     Dosage: 48 MG
  5. PEG-L-ASPARINASE (K-H) [Suspect]
     Dosage: 3675 UNIT
  6. VINCRISTINE SULFATE [Suspect]
     Dosage: 4.4 MG

REACTIONS (21)
  - ABDOMINAL PAIN [None]
  - ACIDOSIS [None]
  - ASPERGILLOSIS [None]
  - ASTHMA [None]
  - CANDIDIASIS [None]
  - CARBON DIOXIDE INCREASED [None]
  - COUGH [None]
  - CROUP INFECTIOUS [None]
  - CULTURE STOOL POSITIVE [None]
  - DIARRHOEA [None]
  - GASTROINTESTINAL HAEMORRHAGE [None]
  - HYPOVENTILATION [None]
  - INFLUENZA [None]
  - NEUTROPENIA [None]
  - NEUTROPHIL COUNT INCREASED [None]
  - PNEUMOTHORAX [None]
  - PROCEDURAL COMPLICATION [None]
  - PYREXIA [None]
  - RESPIRATORY DISTRESS [None]
  - UPPER RESPIRATORY TRACT INFECTION [None]
  - WHEEZING [None]
